FAERS Safety Report 4985555-0 (Version None)
Quarter: 2006Q2

REPORT INFORMATION
  Report Type: 
  Country: None (occurrence: None)
  Receive Date: 20060428
  Receipt Date: 20060221
  Transmission Date: 20061013
  Serious: No
  Sender: FDA-Public Use
  Company Number: US-GLAXOSMITHKLINE-A0594628A

PATIENT
  Age: 45 Year
  Sex: Female

DRUGS (4)
  1. FLOVENT [Suspect]
     Indication: ASTHMA
     Dosage: 110MCG AS REQUIRED
     Route: 055
     Dates: start: 19960101
  2. FLOVENT [Suspect]
     Route: 055
  3. ALBUTEROL SULFATE AUTOHALER [Concomitant]
  4. GENERIC TYLENOL [Concomitant]

REACTIONS (3)
  - DIZZINESS [None]
  - ORAL FUNGAL INFECTION [None]
  - PRODUCTIVE COUGH [None]
